FAERS Safety Report 11845771 (Version 1)
Quarter: 2015Q4

REPORT INFORMATION
  Report Type: Spontaneous
  Country: FR (occurrence: FR)
  Receive Date: 20151217
  Receipt Date: 20151217
  Transmission Date: 20160305
  Serious: Yes (Hospitalization)
  Sender: FDA-Public Use
  Company Number: FR-009507513-1512FRA008199

PATIENT
  Age: 52 Year
  Sex: Female

DRUGS (1)
  1. KEYTRUDA [Suspect]
     Active Substance: PEMBROLIZUMAB
     Indication: MALIGNANT MELANOMA
     Dosage: TOTAL DAILY DOSE UNKNOWN, SINGLE DOSE
     Route: 042
     Dates: start: 20150819, end: 20150819

REACTIONS (3)
  - Headache [Recovered/Resolved]
  - Pachymeningitis [Recovered/Resolved]
  - Uveitis [Recovered/Resolved]

NARRATIVE: CASE EVENT DATE: 20150829
